FAERS Safety Report 8896924 (Version 1)
Quarter: 2012Q4

REPORT INFORMATION
  Report Type: Spontaneous
  Country: JP (occurrence: None)
  Receive Date: 20121105
  Receipt Date: 20121105
  Transmission Date: 20130627
  Serious: Yes (Other)
  Sender: FDA-Public Use
  Company Number: DSA_60471_2012

PATIENT

DRUGS (3)
  1. FLUOROURACIL (FLUOROURACIL) [Suspect]
     Indication: HEAD AND NECK CANCER
  2. DOCETAXEL [Suspect]
  3. CISPLATIN [Suspect]

REACTIONS (1)
  - Anaemia [None]
